FAERS Safety Report 4270865-5 (Version None)
Quarter: 2004Q1

REPORT INFORMATION
  Report Type: 
  Country: None (occurrence: None)
  Receive Date: 20040113
  Receipt Date: 20040105
  Transmission Date: 20041129
  Serious: Yes (Hospitalization)
  Sender: FDA-Public Use
  Company Number: 2004193044FR

PATIENT
  Age: 59 Year
  Sex: Male
  Weight: 92 kg

DRUGS (6)
  1. EPIRUBICIN [Suspect]
     Indication: SMALL CELL LUNG CANCER STAGE UNSPECIFIED
     Dosage: 10 MG, CYCLIC, IV
     Route: 042
     Dates: start: 20030903, end: 20030905
  2. CISPLATIN [Suspect]
     Indication: SMALL CELL LUNG CANCER STAGE UNSPECIFIED
     Dosage: CYCLIC, IV
     Route: 042
     Dates: start: 20030903, end: 20030905
  3. VEPESID [Suspect]
     Indication: SMALL CELL LUNG CANCER STAGE UNSPECIFIED
     Dosage: 100 MG, CYCLIC, IV
     Route: 042
     Dates: start: 20030903, end: 20030905
  4. CYCLOPHOSPHAMIDE [Suspect]
     Indication: SMALL CELL LUNG CANCER STAGE UNSPECIFIED
     Dosage: 100 MG, CYCLIC, IV
     Route: 042
     Dates: start: 20030903, end: 20030905
  5. MOPRAL [Concomitant]
  6. SOLU-MEDROL [Concomitant]

REACTIONS (3)
  - BONE MARROW DEPRESSION [None]
  - PSEUDOMONAS INFECTION [None]
  - SEPSIS [None]
